FAERS Safety Report 17854589 (Version 1)
Quarter: 2020Q2

REPORT INFORMATION
  Report Type: Spontaneous
  Country: FR (occurrence: FR)
  Receive Date: 20200603
  Receipt Date: 20200603
  Transmission Date: 20200714
  Serious: Yes (Other)
  Sender: FDA-Public Use
  Company Number: FR-BRISTOL-MYERS SQUIBB COMPANY-BMS-2020-043262

PATIENT
  Age: 85 Year
  Sex: Male

DRUGS (5)
  1. JAKAVI [RUXOLITINIB] [Suspect]
     Active Substance: RUXOLITINIB
     Indication: ESSENTIAL THROMBOCYTHAEMIA
     Dosage: 20 MILLIGRAM, DAILY
     Route: 048
     Dates: start: 20191105
  2. JAKAVI [RUXOLITINIB] [Suspect]
     Active Substance: RUXOLITINIB
     Indication: PRODUCT USED FOR UNKNOWN INDICATION
     Dosage: 2 DOSAGE FORM, DAILY
     Route: 048
     Dates: start: 20160224, end: 20181031
  3. HYDREA [Suspect]
     Active Substance: HYDROXYUREA
     Indication: ESSENTIAL THROMBOCYTHAEMIA
     Dosage: 2 DOSAGE FORM, DAILY
     Route: 048
     Dates: start: 20040216, end: 20040913
  4. HYDREA [Suspect]
     Active Substance: HYDROXYUREA
     Indication: PRODUCT USED FOR UNKNOWN INDICATION
     Dosage: 2 DOSAGE FORM, DAILY
     Route: 048
     Dates: start: 20150107
  5. VERCYTE [Suspect]
     Active Substance: PIPOBROMAN
     Indication: ESSENTIAL THROMBOCYTHAEMIA
     Dosage: 2 DOSAGE FORM, DAILY
     Route: 048
     Dates: start: 20040913, end: 20110407

REACTIONS (3)
  - Condition aggravated [Recovered/Resolved]
  - Actinic keratosis [Recovered/Resolved]
  - Squamous cell carcinoma [Recovered/Resolved]
